FAERS Safety Report 9806906 (Version 2)
Quarter: 2014Q1

REPORT INFORMATION
  Report Type: Report from Study
  Country: JP (occurrence: JP)
  Receive Date: 20140109
  Receipt Date: 20140109
  Transmission Date: 20141002
  Serious: Yes (Other)
  Sender: FDA-Public Use
  Company Number: JP-ROCHE-1329537

PATIENT
  Age: 87 Year
  Sex: Female

DRUGS (1)
  1. ALTEPLASE [Suspect]
     Indication: CEREBROVASCULAR ACCIDENT
     Route: 042

REACTIONS (4)
  - Cerebral microhaemorrhage [Unknown]
  - Cerebral haemorrhage [Unknown]
  - Altered state of consciousness [Unknown]
  - Hemiparesis [Unknown]
